FAERS Safety Report 19847582 (Version 1)
Quarter: 2021Q3

REPORT INFORMATION
  Report Type: Report from Study
  Country: CN (occurrence: CN)
  Receive Date: 20210917
  Receipt Date: 20210917
  Transmission Date: 20211014
  Serious: Yes (Death, Hospitalization)
  Sender: FDA-Public Use
  Company Number: CN-ROCHE-2904685

PATIENT
  Age: 68 Year
  Sex: Male
  Weight: 59 kg

DRUGS (19)
  1. PREDNISONE. [Suspect]
     Active Substance: PREDNISONE
     Indication: DIFFUSE LARGE B-CELL LYMPHOMA
     Dosage: ON 24/AUG/2021, PATIENT RECEIVE THE MOST RECENT DOSE OF ORAL PREDNISONE PRIOR TO SAE AT 100 MG DAILY
     Route: 048
     Dates: start: 20210714
  2. TROPISETRON HYDROCHLORIDE [Concomitant]
     Active Substance: TROPISETRON HYDROCHLORIDE
     Route: 042
     Dates: start: 20210804, end: 20210804
  3. ACETAMINOPHEN. [Concomitant]
     Active Substance: ACETAMINOPHEN
     Route: 048
     Dates: start: 20210804, end: 20210804
  4. SODIUM CHLORIDE. [Concomitant]
     Active Substance: SODIUM CHLORIDE
     Route: 042
     Dates: start: 20210824, end: 20210824
  5. TROPISETRON HYDROCHLORIDE [Concomitant]
     Active Substance: TROPISETRON HYDROCHLORIDE
     Route: 042
     Dates: start: 20210824, end: 20210824
  6. ACETAMINOPHEN. [Concomitant]
     Active Substance: ACETAMINOPHEN
     Route: 048
     Dates: start: 20210824, end: 20210824
  7. DEXTROSE. [Concomitant]
     Active Substance: DEXTROSE
     Route: 042
     Dates: start: 20210825, end: 20210825
  8. SODIUM BICARBONATE. [Concomitant]
     Active Substance: SODIUM BICARBONATE
     Route: 045
     Dates: start: 20210824, end: 20210825
  9. SODIUM CHLORIDE. [Concomitant]
     Active Substance: SODIUM CHLORIDE
     Route: 042
     Dates: start: 20210825, end: 20210825
  10. CYCLOPHOSPHAMIDE. [Suspect]
     Active Substance: CYCLOPHOSPHAMIDE
     Indication: DIFFUSE LARGE B-CELL LYMPHOMA
     Dosage: ON 24/AUG/2021, PATIENT RECEIVE THE MOST RECENT DOSE OF INTRAVENOUS CYCLOPHOSPHAMIDE BEFORE SAE AT 1
     Route: 042
     Dates: start: 20210714
  11. DOXORUBICIN [Suspect]
     Active Substance: DOXORUBICIN
     Indication: DIFFUSE LARGE B-CELL LYMPHOMA
     Dosage: ON 24/AUG/2021, PATIENT RECEIVE THE MOST RECENT DOSE OF INTRAVENOUS DOXORUBICIN PRIOR TO SAE 80 MG
     Route: 042
     Dates: start: 20210714
  12. FUROSEMIDE. [Concomitant]
     Active Substance: FUROSEMIDE
     Route: 042
     Dates: start: 20210824, end: 20210825
  13. DIPHENHYDRAMINE HYDROCHLORIDE. [Concomitant]
     Active Substance: DIPHENHYDRAMINE HYDROCHLORIDE
     Route: 048
     Dates: start: 20210804, end: 20210804
  14. SODIUM CHLORIDE. [Concomitant]
     Active Substance: SODIUM CHLORIDE
     Route: 042
     Dates: start: 20210803, end: 20210805
  15. DIPHENHYDRAMINE HYDROCHLORIDE. [Concomitant]
     Active Substance: DIPHENHYDRAMINE HYDROCHLORIDE
     Route: 048
     Dates: start: 20210824, end: 20210824
  16. RITUXIMAB. [Suspect]
     Active Substance: RITUXIMAB
     Indication: DIFFUSE LARGE B-CELL LYMPHOMA
     Dosage: ON 24/AUG/2021, PATIENT RECEIVE THE MOST RECENT DOSE OF INTRAVENOUS RITUXIMAB AT DOSE OF 637.5 MG.
     Route: 042
     Dates: start: 20210714
  17. SODIUM BICARBONATE. [Concomitant]
     Active Substance: SODIUM BICARBONATE
     Route: 042
     Dates: start: 20210803, end: 20210805
  18. FUROSEMIDE. [Concomitant]
     Active Substance: FUROSEMIDE
     Route: 042
     Dates: start: 20210803, end: 20210805
  19. VINCRISTINE [Suspect]
     Active Substance: VINCRISTINE
     Indication: DIFFUSE LARGE B-CELL LYMPHOMA
     Dosage: ON 24/AUG/2021, PATIENT RECEIVE THE MOST RECENT DOSE OF INTRAVENOUS VINCRISTINE PRIOR TO SAE AT 2 MG
     Route: 042
     Dates: start: 20210714

REACTIONS (2)
  - Myelosuppression [Recovered/Resolved]
  - Death [Fatal]

NARRATIVE: CASE EVENT DATE: 20210901
